FAERS Safety Report 4960747-5 (Version None)
Quarter: 2006Q1

REPORT INFORMATION
  Report Type: 
  Country: None (occurrence: None)
  Receive Date: 20060331
  Receipt Date: 20060331
  Transmission Date: 20060701
  Serious: Yes (Hospitalization)
  Sender: FDA-Public Use
  Company Number: None

PATIENT
  Age: 53 Year
  Sex: Male
  Weight: 82.3 kg

DRUGS (1)
  1. ALEVE [Suspect]
     Dosage: 200MG X 2  ONCE  PO    (DURATION: ONCE)
     Route: 048

REACTIONS (5)
  - PRURITUS [None]
  - RASH ERYTHEMATOUS [None]
  - RASH GENERALISED [None]
  - RASH MACULAR [None]
  - SIMILAR REACTION ON PREVIOUS EXPOSURE TO DRUG [None]
